FAERS Safety Report 7335807-4 (Version None)
Quarter: 2011Q1

REPORT INFORMATION
  Report Type: 
  Country: None (occurrence: None)
  Receive Date: 20110307
  Receipt Date: 20110228
  Transmission Date: 20110831
  Serious: Yes (Life-Threatening, Hospitalization, Other)
  Sender: FDA-Public Use
  Company Number: US-ASTELLAS-2007US002426

PATIENT

DRUGS (9)
  1. AMEVIVE [Suspect]
     Indication: PSORIASIS
     Dosage: 7.5 MG, WEEKLY
     Route: 042
     Dates: start: 20030611
  2. ASPIRIN [Concomitant]
  3. NITROGLYCERIN [Concomitant]
  4. AVAPRO [Concomitant]
     Dosage: 150 MG, UID/QD
  5. AMEVIVE [Suspect]
     Indication: PSORIASIS
     Dosage: 15 MG, WEEKLY
     Route: 030
     Dates: end: 20050912
  6. LOVENOX [Concomitant]
     Dosage: 1 MG/KG, BID
     Route: 058
  7. ATENOLOL [Concomitant]
     Dosage: 25 MG, UID/QD
  8. NEXIUM [Concomitant]
     Dosage: 40 MG, UID/QD
  9. NORVASC [Concomitant]

REACTIONS (4)
  - HYPERTENSION [None]
  - ANGINA UNSTABLE [None]
  - ACUTE MYOCARDIAL INFARCTION [None]
  - GASTRITIS [None]
